FAERS Safety Report 16171333 (Version 1)
Quarter: 2019Q2

REPORT INFORMATION
  Report Type: Spontaneous
  Country: US (occurrence: US)
  Receive Date: 20190408
  Receipt Date: 20190408
  Transmission Date: 20190711
  Serious: No
  Sender: FDA-Public Use
  Company Number: US-TARO-2019TAR00062

PATIENT
  Sex: Male

DRUGS (2)
  1. FLUOROURACIL TOPICAL CREAM USP 5% [Suspect]
     Active Substance: FLUOROURACIL
     Indication: SKIN CANCER
     Dosage: SPARINGLY, 2X/DAY
     Route: 061
     Dates: start: 201901, end: 201901
  2. FLUOROURACIL TOPICAL CREAM USP 5% [Suspect]
     Active Substance: FLUOROURACIL
     Dosage: SPARINGLY, 2X/DAY
     Route: 061
     Dates: start: 201901

REACTIONS (2)
  - Product quality issue [Recovered/Resolved]
  - Application site erythema [Not Recovered/Not Resolved]

NARRATIVE: CASE EVENT DATE: 201901
